FAERS Safety Report 8799219 (Version 3)
Quarter: 2012Q4

REPORT INFORMATION
  Report Type: Report from Study
  Country: CA (occurrence: CA)
  Receive Date: 20120920
  Receipt Date: 20121121
  Transmission Date: 20130627
  Serious: Yes (Hospitalization, Other)
  Sender: FDA-Public Use
  Company Number: CA-ABBOTT-12P-028-0978621-00

PATIENT
  Sex: Female
  Weight: 95 kg

DRUGS (12)
  1. HUMIRA [Suspect]
     Route: 058
     Dates: start: 20060606, end: 2011
  2. HUMIRA [Suspect]
     Dates: start: 201201
  3. HUMIRA [Suspect]
     Route: 058
     Dates: start: 20120326
  4. MEDICATIONS [Suspect]
     Indication: PRODUCT USED FOR UNKNOWN INDICATION
  5. METHOTREXATE [Concomitant]
     Indication: RHEUMATOID ARTHRITIS
     Route: 058
     Dates: start: 201112
  6. EURO FOLIC [Concomitant]
     Indication: VITAMIN SUPPLEMENTATION
     Route: 048
     Dates: start: 201112
  7. CALCIUM [Concomitant]
     Indication: MINERAL SUPPLEMENTATION
     Route: 048
     Dates: start: 201201
  8. COVERSYL [Concomitant]
     Indication: HYPERTENSION
     Dates: start: 201112
  9. ATORVASTATIN [Concomitant]
     Indication: BLOOD CHOLESTEROL INCREASED
     Route: 048
  10. NORVASC [Concomitant]
     Indication: HYPERTENSION
     Route: 048
  11. METFORMIN [Concomitant]
     Indication: DIABETES MELLITUS
  12. VITAMIN D [Concomitant]
     Indication: VITAMIN SUPPLEMENTATION
     Route: 048
     Dates: start: 201201

REACTIONS (9)
  - Paralysis [Recovered/Resolved]
  - Pain [Unknown]
  - Hypertension [Unknown]
  - Amnesia [Recovered/Resolved]
  - Injection site bruising [Recovered/Resolved]
  - Transient ischaemic attack [Recovered/Resolved]
  - Drug dose omission [Recovered/Resolved]
  - Injection site pain [Unknown]
  - Body height decreased [Not Recovered/Not Resolved]
